FAERS Safety Report 7242177-9 (Version None)
Quarter: 2011Q1

REPORT INFORMATION
  Report Type: 
  Country: None (occurrence: None)
  Receive Date: 20110124
  Receipt Date: 20101222
  Transmission Date: 20110831
  Serious: Yes (Death)
  Sender: FDA-Public Use
  Company Number: PHHY2010US85862

PATIENT
  Sex: Male

DRUGS (2)
  1. EXJADE [Suspect]
     Indication: IRON OVERLOAD
     Dosage: UNK
     Route: 048
     Dates: end: 20090701
  2. DESFERAL [Suspect]
     Dosage: UNK UNK
     Route: 048
     Dates: start: 20090801

REACTIONS (2)
  - NEOPLASM MALIGNANT [None]
  - HAIRY CELL LEUKAEMIA [None]
